FAERS Safety Report 25105100 (Version 1)
Quarter: 2025Q1

REPORT INFORMATION
  Report Type: Spontaneous
  Country: US (occurrence: None)
  Receive Date: 20250320
  Receipt Date: 20250320
  Transmission Date: 20250408
  Serious: Yes (Hospitalization)
  Sender: FDA-CTU
  Company Number: None

PATIENT
  Age: 66 Year
  Sex: Male

DRUGS (1)
  1. ATORVASTATIN CALCIUM [Suspect]
     Active Substance: ATORVASTATIN CALCIUM
     Indication: Hyperlipidaemia
     Dates: end: 20220206

REACTIONS (4)
  - Rhabdomyolysis [None]
  - Drug hypersensitivity [None]
  - Adverse reaction [None]
  - Pain in extremity [None]

NARRATIVE: CASE EVENT DATE: 20240802
